FAERS Safety Report 13217778 (Version 1)
Quarter: 2017Q1

REPORT INFORMATION
  Report Type: Other
  Country: US (occurrence: US)
  Receive Date: 20170210
  Receipt Date: 20170210
  Transmission Date: 20170428
  Serious: Yes (Hospitalization, Other)
  Sender: FDA-Public Use
  Company Number: US-ACORDA-ACO_121679_2016

PATIENT
  Sex: Female

DRUGS (1)
  1. AMPYRA [Suspect]
     Active Substance: DALFAMPRIDINE
     Indication: PRODUCT USED FOR UNKNOWN INDICATION
     Dosage: 10 MG, Q 12 HRS
     Route: 048
     Dates: start: 20150630

REACTIONS (5)
  - Urinary tract infection [Recovered/Resolved]
  - Asthenia [Not Recovered/Not Resolved]
  - Dysstasia [Not Recovered/Not Resolved]
  - Abasia [Not Recovered/Not Resolved]
  - Feeling hot [Not Recovered/Not Resolved]
